FAERS Safety Report 9289058 (Version 1)
Quarter: 2013Q2

REPORT INFORMATION
  Report Type: Spontaneous
  Country: US (occurrence: US)
  Receive Date: 20130514
  Receipt Date: 20130514
  Transmission Date: 20140414
  Serious: No
  Sender: FDA-Public Use
  Company Number: US-PFIZER INC-2013148714

PATIENT
  Age: 38 Year
  Sex: Female
  Weight: 68.03 kg

DRUGS (11)
  1. GEODON [Suspect]
     Indication: BIPOLAR DISORDER
     Dosage: 20 MG, 1X/DAY
     Route: 048
  2. GEODON [Suspect]
     Dosage: 40 MG, 1X/DAY
     Route: 048
  3. GEODON [Suspect]
     Dosage: 60 MG, 1X/DAY
     Route: 048
  4. GEODON [Suspect]
     Dosage: 80 MG, 1X/DAY
     Route: 048
  5. GEODON [Suspect]
     Dosage: 60 MG, 1X/DAY
     Route: 048
  6. GEODON [Suspect]
     Dosage: 40 MG, 1X/DAY
     Route: 048
  7. GEODON [Suspect]
     Dosage: 20 MG, 1X/DAY
     Route: 048
  8. HYDROCHLOROTHIAZIDE [Concomitant]
     Dosage: UNK
  9. PROPRANOLOL [Concomitant]
     Dosage: UNK
  10. NEXIUM [Concomitant]
     Dosage: UNK
  11. IBUPROFEN [Concomitant]
     Dosage: UNK

REACTIONS (5)
  - Vision blurred [Unknown]
  - Drug withdrawal syndrome [Unknown]
  - Drug ineffective [Unknown]
  - Drug effect incomplete [Unknown]
  - Malaise [Unknown]
